FAERS Safety Report 18714811 (Version 1)
Quarter: 2021Q1

REPORT INFORMATION
  Report Type: Spontaneous
  Country: US (occurrence: US)
  Receive Date: 20210107
  Receipt Date: 20210107
  Transmission Date: 20210419
  Serious: Yes (Hospitalization, Other)
  Sender: FDA-Public Use
  Company Number: US-APOTEX-2021AP000024

PATIENT
  Age: 72 Year
  Sex: Male

DRUGS (2)
  1. GABAPENTIN. [Suspect]
     Active Substance: GABAPENTIN
     Indication: PRODUCT USED FOR UNKNOWN INDICATION
     Dosage: 600 MILLIGRAM, TID
     Route: 065
  2. GABAPENTIN. [Suspect]
     Active Substance: GABAPENTIN
     Dosage: 600 MILLIGRAM, QD
     Route: 065

REACTIONS (7)
  - Drug level increased [Recovered/Resolved]
  - Myoclonus [Recovered/Resolved]
  - Neurotoxicity [Recovered/Resolved]
  - Asterixis [Recovered/Resolved]
  - Confusional state [Recovered/Resolved]
  - Mental status changes [Recovered/Resolved]
  - Agitation [Recovered/Resolved]
